FAERS Safety Report 8860249 (Version 3)
Quarter: 2013Q4

REPORT INFORMATION
  Report Type: Report from Study
  Country: JP (occurrence: JP)
  Receive Date: 20121025
  Receipt Date: 20131220
  Transmission Date: 20140711
  Serious: Yes (Hospitalization)
  Sender: FDA-Public Use
  Company Number: JP-009507513-1210JPN006038

PATIENT
  Age: 63 Year
  Sex: Female
  Weight: 53 kg

DRUGS (10)
  1. REBETOL [Suspect]
     Indication: CHRONIC HEPATITIS C
     Dosage: 600 MG, QD
     Route: 048
     Dates: start: 20120412, end: 20120425
  2. REBETOL [Suspect]
     Dosage: 400 MG, QD
     Route: 048
     Dates: start: 20120426, end: 20120508
  3. REBETOL [Suspect]
     Dosage: 200 MG, QD
     Route: 048
     Dates: start: 20120509, end: 20120704
  4. REBETOL [Suspect]
     Dosage: 400 MG, QD
     Route: 048
     Dates: start: 20120705, end: 20120925
  5. REBETOL [Suspect]
     Dosage: DAILY DOSAGE UNKNOWN
     Route: 048
     Dates: start: 200201, end: 200206
  6. PEGINTRON [Suspect]
     Indication: CHRONIC HEPATITIS C
     Dosage: 1.5 MICROGRAM PER KILOGRAM, QW
     Route: 058
     Dates: start: 20120412, end: 20120918
  7. TELAVIC [Suspect]
     Indication: CHRONIC HEPATITIS C
     Dosage: 1500 MG, QD
     Route: 048
     Dates: start: 20120412, end: 20120515
  8. TELAVIC [Suspect]
     Dosage: 1000 MG, QD
     Route: 048
     Dates: start: 20120516, end: 20120705
  9. INTRON A POWDER FOR INJECTION 300 [Suspect]
     Indication: CHRONIC HEPATITIS C
     Dosage: DAILY DOSAGE UNKNOWN
     Route: 065
     Dates: start: 200201, end: 200206
  10. TALION (BEPOTASTINE BESYLATE) [Concomitant]
     Indication: CHRONIC HEPATITIS C
     Dosage: 20 MG, QD
     Route: 048
     Dates: end: 20120820

REACTIONS (3)
  - Anaemia [Recovered/Resolved]
  - Drug ineffective [Unknown]
  - Transfusion [Recovered/Resolved]
